FAERS Safety Report 9546824 (Version 1)
Quarter: 2013Q3

REPORT INFORMATION
  Report Type: Other
  Country: TR (occurrence: TR)
  Receive Date: 20130924
  Receipt Date: 20130924
  Transmission Date: 20140515
  Serious: Yes (Life-Threatening, Hospitalization)
  Sender: FDA-Public Use
  Company Number: TR-BRISTOL-MYERS SQUIBB COMPANY-19422336

PATIENT
  Age: 35 Year
  Sex: Female

DRUGS (2)
  1. METFORMIN HCL [Suspect]
  2. ROSIGLITAZONE [Suspect]

REACTIONS (4)
  - Suicide attempt [Unknown]
  - Intentional overdose [Unknown]
  - Metabolic acidosis [Unknown]
  - Loss of consciousness [Unknown]
